FAERS Safety Report 12941658 (Version 2)
Quarter: 2017Q1

REPORT INFORMATION
  Report Type: Spontaneous
  Country: US (occurrence: US)
  Receive Date: 20161115
  Receipt Date: 20170116
  Transmission Date: 20170428
  Serious: No
  Sender: FDA-Public Use
  Company Number: US-JNJFOC-20161106840

PATIENT
  Sex: Male

DRUGS (1)
  1. RISPERDAL [Suspect]
     Active Substance: RISPERIDONE
     Indication: BIPOLAR DISORDER
     Route: 048
     Dates: start: 2006, end: 2007

REACTIONS (5)
  - Malaise [Unknown]
  - Abnormal weight gain [Unknown]
  - Impulse-control disorder [Unknown]
  - Gynaecomastia [Unknown]
  - Lethargy [Unknown]

NARRATIVE: CASE EVENT DATE: 2006
